FAERS Safety Report 10448073 (Version 1)
Quarter: 2014Q3

REPORT INFORMATION
  Report Type: Spontaneous
  Country: US (occurrence: US)
  Receive Date: 20140911
  Receipt Date: 20140911
  Transmission Date: 20150326
  Serious: Yes (Hospitalization, Other)
  Sender: FDA-Public Use
  Company Number: US-PFIZER INC-2014251273

PATIENT
  Age: 50 Year
  Sex: Female
  Weight: 110 kg

DRUGS (6)
  1. XANAX [Concomitant]
     Active Substance: ALPRAZOLAM
     Indication: ANXIETY
     Dosage: 1 MG, 2X/DAY
  2. ASPIRIN. [Concomitant]
     Active Substance: ASPIRIN
     Indication: CARDIAC DISORDER
     Dosage: 81 MG, DAILY
  3. EFFEXOR [Suspect]
     Active Substance: VENLAFAXINE HYDROCHLORIDE
     Dosage: 150 MG, DAILY
     Route: 048
  4. CRESTOR [Concomitant]
     Active Substance: ROSUVASTATIN CALCIUM
     Indication: BLOOD CHOLESTEROL INCREASED
     Dosage: 10 MG, DAILY
  5. EFFEXOR [Suspect]
     Active Substance: VENLAFAXINE HYDROCHLORIDE
     Indication: ANTIDEPRESSANT THERAPY
     Dosage: 150 MG, 2X/DAY
     Route: 048
     Dates: start: 2012
  6. LEVEMIR [Concomitant]
     Active Substance: INSULIN DETEMIR
     Indication: DIABETES MELLITUS
     Dosage: 100 IU, IN NIGHT

REACTIONS (20)
  - Dizziness [Unknown]
  - Faeces pale [Unknown]
  - Paraesthesia [Unknown]
  - Dyspepsia [Recovered/Resolved]
  - Muscle tightness [Unknown]
  - Dry mouth [Not Recovered/Not Resolved]
  - Chest pain [Unknown]
  - Feeling drunk [Unknown]
  - Crying [Unknown]
  - Blood pressure abnormal [Unknown]
  - Headache [Not Recovered/Not Resolved]
  - Chromaturia [Unknown]
  - Night sweats [Not Recovered/Not Resolved]
  - Hypertension [Unknown]
  - Mitral valve prolapse [Not Recovered/Not Resolved]
  - Insomnia [Not Recovered/Not Resolved]
  - Musculoskeletal stiffness [Unknown]
  - Flatulence [Unknown]
  - Fatigue [Unknown]
  - Muscle spasms [Unknown]

NARRATIVE: CASE EVENT DATE: 2014
